FAERS Safety Report 23942413 (Version 1)
Quarter: 2024Q2

REPORT INFORMATION
  Report Type: Spontaneous
  Country: US (occurrence: None)
  Receive Date: 20240605
  Receipt Date: 20240605
  Transmission Date: 20240715
  Serious: Yes (Hospitalization, Other)
  Sender: FDA-Public Use
  Company Number: 2024A127804

PATIENT
  Age: 54 Year
  Sex: Male
  Weight: 174.4 kg

DRUGS (18)
  1. OMEPRAZOLE [Suspect]
     Active Substance: DONEPEZIL HYDROCHLORIDE\OMEPRAZOLE\OMEPRAZOLE MAGNESIUM
     Route: 048
  2. CARBOPLATIN [Suspect]
     Active Substance: CARBOPLATIN
     Indication: Adenocarcinoma
     Dosage: 3 MG/ML/MIN, EVERY 3 WEEKS
     Route: 042
     Dates: start: 20240103, end: 20240103
  3. CABAZITAXEL [Suspect]
     Active Substance: CABAZITAXEL
     Indication: Adenocarcinoma
     Dosage: 15 MG/M2, EVERY 3 WEEKS
     Route: 042
     Dates: start: 20240103, end: 20240103
  4. ALBUTEROL [Concomitant]
     Active Substance: ALBUTEROL
     Dates: start: 20200715
  5. FENTANYL [Concomitant]
     Active Substance: FENTANYL\FENTANYL CITRATE
     Dates: start: 20231214
  6. FUROSEMIDE [Concomitant]
     Active Substance: FUROSEMIDE
     Dates: start: 20210820
  7. HYDRALAZINE [Concomitant]
     Active Substance: HYDRALAZINE HYDROCHLORIDE
     Dates: start: 20230611
  8. MELATONIN [Concomitant]
     Active Substance: MELATONIN
     Dates: start: 20231102
  9. METOPROLOL SUCCINATE [Concomitant]
     Active Substance: METOPROLOL SUCCINATE
     Dates: start: 20231207
  10. MICONAZOLE [Concomitant]
     Active Substance: MICONAZOLE
     Dates: start: 20230828
  11. NARCAN [Concomitant]
     Active Substance: NALOXONE HYDROCHLORIDE
     Dates: start: 20231025
  12. NYSTATIN [Concomitant]
     Active Substance: NYSTATIN
     Dates: start: 20230712
  13. OMEPRAZOLE [Concomitant]
     Active Substance: DONEPEZIL HYDROCHLORIDE\OMEPRAZOLE\OMEPRAZOLE MAGNESIUM
     Dates: start: 20200506
  14. OXYBUTYNIN [Concomitant]
     Active Substance: OXYBUTYNIN\OXYBUTYNIN CHLORIDE
     Dates: start: 20230824
  15. OXYCODONE [Concomitant]
     Active Substance: OXYCODONE\OXYCODONE HYDROCHLORIDE
     Dates: start: 20180131
  16. ROPINIROLE [Concomitant]
     Active Substance: ROPINIROLE
     Dates: start: 20221005
  17. SENNOSIDES [Concomitant]
     Active Substance: SENNOSIDES
     Dates: start: 20190709
  18. SILODOSIN [Concomitant]
     Active Substance: SILODOSIN
     Dates: start: 20190709

REACTIONS (13)
  - Anaemia [Not Recovered/Not Resolved]
  - Metastases to liver [Unknown]
  - Metastases to lung [Unknown]
  - Proteinuria [Unknown]
  - Haematuria [Unknown]
  - Nausea [Unknown]
  - Urinary tract infection [Unknown]
  - COVID-19 [Unknown]
  - Troponin increased [Unknown]
  - Dizziness [Unknown]
  - Muscular weakness [Unknown]
  - Blood bilirubin increased [Unknown]
  - Chromaturia [Unknown]
